FAERS Safety Report 24409798 (Version 2)
Quarter: 2024Q4

REPORT INFORMATION
  Report Type: Report from Study
  Country: KR (occurrence: KR)
  Receive Date: 20241008
  Receipt Date: 20241016
  Transmission Date: 20250115
  Serious: Yes (Hospitalization, Other)
  Sender: TAKEDA
  Company Number: KR-TAKEDA-2024TUS098796

PATIENT
  Age: 30 Year
  Sex: Male
  Weight: 78.9 kg

DRUGS (7)
  1. VEDOLIZUMAB [Suspect]
     Active Substance: VEDOLIZUMAB
     Indication: Crohn^s disease
     Dosage: 300 MILLIGRAM
     Route: 042
     Dates: start: 20220328, end: 20230112
  2. Fexuclue [Concomitant]
     Dosage: 40 MILLIGRAM, QD
     Route: 048
     Dates: start: 20221019
  3. Cycin [Concomitant]
     Dosage: 500 MILLIGRAM, BID
     Route: 048
     Dates: start: 20230206
  4. FLASINYL [Concomitant]
     Dosage: 500 MILLIGRAM, BID
     Route: 048
     Dates: start: 20221019
  5. AZATHIOPRINE [Concomitant]
     Active Substance: AZATHIOPRINE
     Dosage: 50 MILLIGRAM, QD
     Route: 048
     Dates: start: 20220328
  6. INFLIXIMAB [Concomitant]
     Active Substance: INFLIXIMAB
     Dosage: 100 MILLIGRAM
     Route: 042
     Dates: start: 20230310
  7. Citopcin [Concomitant]
     Dosage: 200 MILLILITER, BID
     Route: 042
     Dates: start: 20230209

REACTIONS (1)
  - Anal abscess [Recovering/Resolving]

NARRATIVE: CASE EVENT DATE: 20230206
